FAERS Safety Report 16275808 (Version 1)
Quarter: 2019Q2

REPORT INFORMATION
  Report Type: Spontaneous
  Country: US (occurrence: US)
  Receive Date: 20190503
  Receipt Date: 20190503
  Transmission Date: 20190711
  Serious: No
  Sender: FDA-Public Use
  Company Number: None

PATIENT
  Sex: Male

DRUGS (16)
  1. LOSARTAN. [Concomitant]
     Active Substance: LOSARTAN
  2. AMLODIPINE [Concomitant]
     Active Substance: AMLODIPINE BESYLATE
  3. FLOVENT [Concomitant]
     Active Substance: FLUTICASONE PROPIONATE
  4. TELMISARTAN. [Concomitant]
     Active Substance: TELMISARTAN
  5. DIFLUNISAL. [Concomitant]
     Active Substance: DIFLUNISAL
  6. AMITRIPTYLINE [Concomitant]
     Active Substance: AMITRIPTYLINE
  7. HYDROCHLOROTHIAZIDE. [Concomitant]
     Active Substance: HYDROCHLOROTHIAZIDE
  8. METHOCARBAMOL. [Concomitant]
     Active Substance: METHOCARBAMOL
  9. LEVOFLOXACIN. [Concomitant]
     Active Substance: LEVOFLOXACIN
  10. TOPIRAMATE. [Concomitant]
     Active Substance: TOPIRAMATE
  11. ENBREL [Suspect]
     Active Substance: ETANERCEPT
     Dosage: ?          OTHER FREQUENCY:ONCE A WEEK;?
     Route: 058
  12. TESTOSTERONE CYP [Concomitant]
     Active Substance: TESTOSTERONE CYPIONATE
  13. CEFUROXIME. [Concomitant]
     Active Substance: CEFUROXIME
  14. TAMSULOSIN [Concomitant]
     Active Substance: TAMSULOSIN
  15. CLONIDINE. [Concomitant]
     Active Substance: CLONIDINE
  16. PREDNISONE. [Concomitant]
     Active Substance: PREDNISONE

REACTIONS (3)
  - Pyrexia [None]
  - Infection [None]
  - Immunodeficiency [None]
